FAERS Safety Report 15481225 (Version 1)
Quarter: 2018Q4

REPORT INFORMATION
  Report Type: Spontaneous
  Country: ES (occurrence: ES)
  Receive Date: 20181010
  Receipt Date: 20181010
  Transmission Date: 20190205
  Serious: Yes (Hospitalization, Other)
  Sender: FDA-Public Use
  Company Number: ES-HETERO CORPORATE-HET2018ES00961

PATIENT
  Age: 90 Year
  Sex: Female

DRUGS (2)
  1. LEVOFLOXACIN. [Suspect]
     Active Substance: LEVOFLOXACIN
     Indication: RESPIRATORY TRACT INFECTION
     Dosage: 500 MG, QD
     Route: 048
     Dates: start: 20170305, end: 20170306
  2. CEFDITOREN [Suspect]
     Active Substance: CEFDITOREN
     Indication: RESPIRATORY TRACT INFECTION
     Dosage: 400 MG, BID
     Route: 048
     Dates: start: 20170226, end: 20170304

REACTIONS (1)
  - Acute generalised exanthematous pustulosis [Recovered/Resolved]

NARRATIVE: CASE EVENT DATE: 20170307
